FAERS Safety Report 8669352 (Version 3)
Quarter: 2013Q4

REPORT INFORMATION
  Report Type: Spontaneous
  Country: US (occurrence: US)
  Receive Date: 20120717
  Receipt Date: 20131105
  Transmission Date: 20140711
  Serious: Yes (Life-Threatening, Hospitalization)
  Sender: FDA-Public Use
  Company Number: US-009507513-1207USA002452

PATIENT
  Age: 91 Year
  Sex: Female

DRUGS (3)
  1. PRIMAXIN I.V. [Suspect]
     Indication: URINARY TRACT INFECTION
  2. CEFEPIME [Concomitant]
     Indication: URINARY TRACT INFECTION
  3. VANCOMYCIN [Concomitant]
     Indication: URINARY TRACT INFECTION

REACTIONS (1)
  - Delirium [Recovered/Resolved]
